FAERS Safety Report 12165718 (Version 1)
Quarter: 2016Q1

REPORT INFORMATION
  Report Type: Not Available
  Country: None (occurrence: US)
  Receive Date: 20160309
  Receipt Date: 20160309
  Transmission Date: 20160608
  Serious: No
  Sender: FDA-Public Use
  Company Number: US-AKORN-8863

PATIENT
  Age: 55 Year
  Sex: Male

DRUGS (1)
  1. IC-GREEN [Suspect]
     Active Substance: INDOCYANINE GREEN

REACTIONS (2)
  - Foreign body in eye [Recovered/Resolved]
  - Medication residue present [Recovered/Resolved]

NARRATIVE: CASE EVENT DATE: 20150506
